FAERS Safety Report 8282270-5 (Version None)
Quarter: 2012Q2

REPORT INFORMATION
  Report Type: 
  Country: None (occurrence: None)
  Receive Date: 20120413
  Receipt Date: 20120406
  Transmission Date: 20120825
  Serious: Yes (Other)
  Sender: FDA-Public Use
  Company Number: JP-JNJFOC-20120213241

PATIENT
  Age: 39 Year
  Sex: Female

DRUGS (11)
  1. DEZOLAM [Concomitant]
     Route: 048
  2. MOTILIUM [Concomitant]
     Route: 048
  3. AN UNKNOWN MEDICATION [Concomitant]
     Route: 048
  4. TRIHEXIN [Concomitant]
     Route: 048
  5. MEILAX [Concomitant]
     Dosage: AS NECESSARY
     Route: 048
  6. INVEGA [Suspect]
     Indication: PRODUCT USED FOR UNKNOWN INDICATION
     Route: 048
     Dates: start: 20110401, end: 20110418
  7. CHLORPROMAZINE HCL [Concomitant]
     Route: 048
     Dates: end: 20120221
  8. GASMOTIN [Concomitant]
     Route: 048
  9. INVEGA [Suspect]
     Route: 048
     Dates: start: 20110304, end: 20120222
  10. LONASEN [Concomitant]
     Route: 048
  11. CHLORPROMAZINE HCL [Concomitant]
     Route: 048

REACTIONS (1)
  - HYPERGLYCAEMIA [None]
